FAERS Safety Report 24276001 (Version 1)
Quarter: 2024Q3

REPORT INFORMATION
  Report Type: Spontaneous
  Country: MX (occurrence: MX)
  Receive Date: 20240903
  Receipt Date: 20240903
  Transmission Date: 20241017
  Serious: Yes (Hospitalization)
  Sender: AMGEN
  Company Number: MX-AMGEN-MEXSP2024172354

PATIENT
  Sex: Male

DRUGS (2)
  1. LUMAKRAS [Suspect]
     Active Substance: SOTORASIB
     Indication: Non-small cell lung cancer
     Dosage: UNK, RECOMMENDED INITIAL DOSE
     Route: 065
     Dates: start: 2024, end: 2024
  2. LUMAKRAS [Suspect]
     Active Substance: SOTORASIB
     Dosage: UNK, LOWEST DOSE
     Route: 065
     Dates: start: 20240816, end: 202408

REACTIONS (3)
  - Liver disorder [Unknown]
  - Transaminases abnormal [Unknown]
  - Blood bilirubin abnormal [Unknown]

NARRATIVE: CASE EVENT DATE: 20240101
